FAERS Safety Report 12431161 (Version 1)
Quarter: 2016Q2

REPORT INFORMATION
  Report Type: Report from Study
  Country: GB (occurrence: GB)
  Receive Date: 20160603
  Receipt Date: 20160603
  Transmission Date: 20160815
  Serious: Yes (Other)
  Sender: FDA-Public Use
  Company Number: GB-ROCHE-1767143

PATIENT

DRUGS (3)
  1. PREDNISOLONE. [Concomitant]
     Active Substance: PREDNISOLONE
     Indication: ANTI-NEUTROPHIL CYTOPLASMIC ANTIBODY POSITIVE VASCULITIS
  2. MYCOPHENOLATE MOFETIL. [Suspect]
     Active Substance: MYCOPHENOLATE MOFETIL
     Indication: ANTI-NEUTROPHIL CYTOPLASMIC ANTIBODY POSITIVE VASCULITIS
     Dosage: AND INCREASE IN INCREMENTS TO 1 G
     Route: 065
  3. MYCOPHENOLATE MOFETIL. [Suspect]
     Active Substance: MYCOPHENOLATE MOFETIL
     Indication: DIFFUSE VASCULITIS

REACTIONS (25)
  - Diarrhoea [Unknown]
  - Cellulitis staphylococcal [Unknown]
  - Disturbance in attention [Unknown]
  - Gingivitis [Unknown]
  - Pharyngitis [Unknown]
  - Rash [Unknown]
  - Respiratory tract infection [Unknown]
  - Drug intolerance [Unknown]
  - Urinary tract infection [Unknown]
  - Headache [Unknown]
  - Rectal haemorrhage [Unknown]
  - Viral infection [Unknown]
  - Alopecia [Unknown]
  - Pancytopenia [Unknown]
  - Sinusitis bacterial [Unknown]
  - Panophthalmitis [Unknown]
  - Depression [Unknown]
  - Onychomycosis [Unknown]
  - Vomiting [Unknown]
  - Insomnia [Unknown]
  - Meningitis [Unknown]
  - Nausea [Unknown]
  - Abdominal pain [Unknown]
  - Herpes zoster [Unknown]
  - Acne [Unknown]
